FAERS Safety Report 7388476-1 (Version None)
Quarter: 2011Q2

REPORT INFORMATION
  Report Type: 
  Country: None (occurrence: None)
  Receive Date: 20110401
  Receipt Date: 20110318
  Transmission Date: 20111010
  Serious: Yes (Hospitalization)
  Sender: FDA-Public Use
  Company Number: DE-JNJFOC-20100908087

PATIENT
  Sex: Male
  Weight: 33.2 kg

DRUGS (10)
  1. MESALAMINE [Concomitant]
     Route: 048
  2. OMEPRAZOLE [Concomitant]
  3. MONTELUKAST SODIUM [Concomitant]
  4. CALCILAC [Concomitant]
  5. DESLORATADINE [Concomitant]
     Indication: HYPERSENSITIVITY
  6. SALBUTAMOL [Concomitant]
     Route: 055
  7. VIANI [Concomitant]
  8. REMICADE [Suspect]
     Indication: CROHN'S DISEASE
     Route: 042
  9. DEXAMETHASONE [Concomitant]
     Route: 047
  10. ANTIBIOTICS [Concomitant]
     Indication: CROHN'S DISEASE

REACTIONS (1)
  - STAPHYLOCOCCAL INFECTION [None]
